FAERS Safety Report 6783507-1 (Version None)
Quarter: 2010Q2

REPORT INFORMATION
  Report Type: 
  Country: None (occurrence: None)
  Receive Date: 20100622
  Receipt Date: 20100616
  Transmission Date: 20101027
  Serious: Yes (Life-Threatening, Hospitalization)
  Sender: FDA-Public Use
  Company Number: PHHY2010BR39370

PATIENT
  Age: 64 Year
  Sex: Male
  Weight: 57 kg

DRUGS (5)
  1. LEPONEX [Suspect]
     Indication: SCHIZOPHRENIA
     Dosage: 1 TABLET 5 TIMES A DAY
     Dates: start: 19950101
  2. LEPONEX [Suspect]
     Dosage: 8 TABLETS (100 MG) DAILY
  3. LEPONEX [Suspect]
     Dosage: 3 TABLETS DAILY
  4. RIVOTRIL [Concomitant]
     Dosage: UNK
  5. DEPAKENE [Concomitant]
     Dosage: UNK

REACTIONS (5)
  - CEREBROVASCULAR ACCIDENT [None]
  - COMA [None]
  - DRUG DOSE OMISSION [None]
  - FEELING ABNORMAL [None]
  - PNEUMONIA [None]
